FAERS Safety Report 4813224-6 (Version None)
Quarter: 2005Q4

REPORT INFORMATION
  Report Type: 
  Country: None (occurrence: None)
  Receive Date: 20051028
  Receipt Date: 20050412
  Transmission Date: 20060501
  Serious: No
  Sender: FDA-Public Use
  Company Number: US-GLAXOSMITHKLINE-A0554012A

PATIENT
  Age: 7 Year
  Sex: Female
  Weight: 24.5 kg

DRUGS (3)
  1. ADVAIR DISKUS 100/50 [Suspect]
     Indication: ASTHMA
     Dosage: 1PUFF SINGLE DOSE
     Route: 055
     Dates: start: 20050411, end: 20050412
  2. ALBUTEROL [Concomitant]
     Dosage: 2PUFF THREE TIMES PER DAY
     Route: 065
  3. PREDNISONE [Concomitant]
     Dosage: 15MG TWICE PER DAY
     Route: 065
     Dates: start: 20050406, end: 20050410

REACTIONS (1)
  - URTICARIA [None]
